FAERS Safety Report 19709641 (Version 2)
Quarter: 2021Q3

REPORT INFORMATION
  Report Type: Spontaneous
  Country: GB (occurrence: GB)
  Receive Date: 20210817
  Receipt Date: 20210825
  Transmission Date: 20211014
  Serious: Yes (Hospitalization)
  Sender: FDA-Public Use
  Company Number: GB-MYLANLABS-2021M1051135

PATIENT
  Age: 70 Year
  Sex: Female

DRUGS (6)
  1. BISOPROLOL [Concomitant]
     Active Substance: BISOPROLOL
     Dosage: 1.25 MILLIGRAM, BID
  2. SALBUTAMOL [Concomitant]
     Active Substance: ALBUTEROL
     Indication: DYSPNOEA
     Dosage: UNK, PRN (2 X 200 DOSE )
     Dates: start: 20210510
  3. DRONEDARONE [Concomitant]
     Active Substance: DRONEDARONE
     Dosage: 400 MG TABLETS HOSPITAL PRESCRIPTION ONLY 0.1 TABLET
     Dates: start: 20200417
  4. VILANTEROL [Concomitant]
     Active Substance: VILANTEROL TRIFENATATE
     Dosage: 22MICROGRAMS/DOSE DRY POWDER INHALER ONE DOSE TO BE INHALED EACH MORNING
  5. WARFARIN [Suspect]
     Active Substance: WARFARIN
     Indication: PRODUCT USED FOR UNKNOWN INDICATION
     Dosage: 4 MILLIGRAM, QD, APART FROM FRIDAYS 5MG
  6. UMECLIDINIUM BROMIDE [Concomitant]
     Active Substance: UMECLIDINIUM BROMIDE
     Dosage: 65MICROGRAMS/DOSE
     Dates: start: 20210510

REACTIONS (1)
  - Epistaxis [Recovering/Resolving]
